FAERS Safety Report 8877013 (Version 1)
Quarter: 2012Q4

REPORT INFORMATION
  Report Type: 
  Country: US (occurrence: US)
  Receive Date: 20121030
  Receipt Date: 20121030
  Transmission Date: 20130627
  Serious: No
  Sender: FDA-Public Use
  Company Number: US-B.I. PHARMACEUTICALS,INC./RIDGEFIELD-2012-BP-26491BP

PATIENT
  Sex: Male
  Weight: 91 kg

DRUGS (1)
  1. FLOMAX CAPSULES [Suspect]
     Indication: BENIGN PROSTATIC HYPERPLASIA
     Dosage: 0.8 mg
     Route: 048
     Dates: start: 201205, end: 201209

REACTIONS (2)
  - Orthostatic hypotension [Not Recovered/Not Resolved]
  - Depressed level of consciousness [Not Recovered/Not Resolved]
